FAERS Safety Report 6635879-6 (Version None)
Quarter: 2010Q1

REPORT INFORMATION
  Report Type: 
  Country: None (occurrence: None)
  Receive Date: 20100316
  Receipt Date: 20100302
  Transmission Date: 20100710
  Serious: Yes (Hospitalization, Other)
  Sender: FDA-Public Use
  Company Number: US-CELGENEUS-163-20785-10020664

PATIENT
  Sex: Female

DRUGS (4)
  1. THALOMID [Suspect]
     Indication: MULTIPLE MYELOMA
     Route: 048
     Dates: start: 20080901
  2. THALOMID [Suspect]
     Route: 048
     Dates: start: 20070601, end: 20080201
  3. THALOMID [Suspect]
     Route: 048
     Dates: start: 20080801, end: 20080901
  4. IV FLUIDS [Concomitant]
     Route: 051

REACTIONS (3)
  - LUNG INFILTRATION [None]
  - NEUROPATHY PERIPHERAL [None]
  - PULMONARY EMBOLISM [None]
